FAERS Safety Report 5393805-4 (Version None)
Quarter: 2007Q3

REPORT INFORMATION
  Report Type: 
  Country: None (occurrence: None)
  Receive Date: 20070723
  Receipt Date: 20070712
  Transmission Date: 20080115
  Serious: Yes (Hospitalization)
  Sender: FDA-Public Use
  Company Number: JP-AVENTIS-200711872JP

PATIENT

DRUGS (2)
  1. ALLEGRA [Suspect]
     Route: 048
  2. CELTECT [Suspect]

REACTIONS (1)
  - HEPATIC FUNCTION ABNORMAL [None]
